FAERS Safety Report 10391169 (Version 2)
Quarter: 2014Q3

REPORT INFORMATION
  Report Type: Spontaneous
  Country: US (occurrence: US)
  Receive Date: 20140818
  Receipt Date: 20140818
  Transmission Date: 20150326
  Serious: Yes (Hospitalization, Other)
  Sender: FDA-Public Use
  Company Number: US-009507513-2012SP000188

PATIENT
  Sex: Female
  Weight: 129.28 kg

DRUGS (2)
  1. NUVARING [Suspect]
     Active Substance: ETHINYL ESTRADIOL\ETONOGESTREL
     Indication: CONTRACEPTION
     Dosage: UNK
     Route: 067
     Dates: start: 200904, end: 20100202
  2. PROVENTIL [Concomitant]
     Active Substance: ALBUTEROL
     Indication: ASTHMA
     Dates: start: 1989

REACTIONS (6)
  - Pulmonary embolism [Unknown]
  - Renal cyst [Unknown]
  - Deep vein thrombosis [Unknown]
  - Asthma [Recovered/Resolved]
  - Abdominal pain lower [Unknown]
  - Bronchitis [Unknown]

NARRATIVE: CASE EVENT DATE: 20100201
